FAERS Safety Report 8456101 (Version 7)
Quarter: 2012Q4

REPORT INFORMATION
  Report Type: Report from Study
  Country: AU (occurrence: AU)
  Receive Date: 20120313
  Receipt Date: 20121115
  Transmission Date: 20130627
  Serious: Yes (Hospitalization)
  Sender: FDA-Public Use
  Company Number: AU-ROCHE-1021663

PATIENT
  Age: 78 Year
  Sex: Male
  Weight: 83 kg

DRUGS (2)
  1. VEMURAFENIB [Suspect]
     Indication: METASTATIC MALIGNANT MELANOMA
     Dosage: date of last dose prior to sae : 29/dec/2011
     Route: 048
     Dates: start: 20111201, end: 20111229
  2. VEMURAFENIB [Suspect]
     Route: 048
     Dates: start: 20120112

REACTIONS (2)
  - Pericarditis [Recovered/Resolved]
  - Atrial flutter [Recovered/Resolved]
